FAERS Safety Report 5370552-6 (Version None)
Quarter: 2007Q2

REPORT INFORMATION
  Report Type: 
  Country: None (occurrence: None)
  Receive Date: 20070626
  Receipt Date: 20070619
  Transmission Date: 20071010
  Serious: Yes (Congenital Anomaly)
  Sender: FDA-Public Use
  Company Number: GB-ELI_LILLY_AND_COMPANY-GB200706004761

PATIENT

DRUGS (3)
  1. FLUOXETINE [Suspect]
     Dosage: UNK, UNK
     Route: 064
  2. FERROUS SULFATE [Concomitant]
     Route: 064
  3. SALBUTAMOL [Concomitant]
     Route: 064

REACTIONS (2)
  - AUTISM [None]
  - DRUG EXPOSURE DURING PREGNANCY [None]
